FAERS Safety Report 14330517 (Version 4)
Quarter: 2019Q4

REPORT INFORMATION
  Report Type: Report from Study
  Country: BR (occurrence: BR)
  Receive Date: 20171227
  Receipt Date: 20191119
  Transmission Date: 20200122
  Serious: Yes (Hospitalization, Other)
  Sender: FDA-Public Use
  Company Number: BR-AMGEN-BRACT2012082065

PATIENT
  Age: 42 Year
  Sex: Male
  Weight: 80 kg

DRUGS (15)
  1. ENBREL [Suspect]
     Active Substance: ETANERCEPT
     Dosage: 50 MILLIGRAM, QWK
     Route: 058
     Dates: start: 2005
  2. ENBREL [Suspect]
     Active Substance: ETANERCEPT
     Dosage: 25 MILLIGRAM, 2 TIMES/WK
     Route: 065
     Dates: start: 2006
  3. NIMESULIDE [Concomitant]
     Active Substance: NIMESULIDE
     Dosage: 30 MILLIGRAM, BID
  4. CITALOPRAM [Concomitant]
     Active Substance: CITALOPRAM HYDROBROMIDE
     Dosage: 20 MILLIGRAM
  5. ENBREL [Suspect]
     Active Substance: ETANERCEPT
     Indication: ANKYLOSING SPONDYLITIS
     Dosage: 50 MILLIGRAM, QWK
     Route: 058
     Dates: start: 2005
  6. MELOXICAM. [Concomitant]
     Active Substance: MELOXICAM
     Dosage: UNK UNK, AS NEEDED (SOMETIMES WHEN NECESSARY)
  7. ALENDRONATE SODIUM. [Concomitant]
     Active Substance: ALENDRONATE SODIUM
     Dosage: UNK
  8. OMEPRAZOL [Concomitant]
     Active Substance: OMEPRAZOLE
     Dosage: UNK
  9. VASOPRIN [Concomitant]
     Dosage: UNK
  10. METHOTREXAT [Concomitant]
     Active Substance: METHOTREXATE
     Dosage: UNK
  11. CALCIUM [Concomitant]
     Active Substance: CALCIUM
     Dosage: UNK
  12. LIPANON [Concomitant]
     Active Substance: FENOFIBRATE
     Dosage: 250 MILLIGRAM
  13. VITAMIN D [Concomitant]
     Active Substance: VITAMIN D NOS
     Dosage: UNK
  14. VITAMIN B [Concomitant]
     Active Substance: VITAMIN B
     Dosage: UNK
  15. RIVOTRIL [Concomitant]
     Active Substance: CLONAZEPAM
     Dosage: UNK

REACTIONS (26)
  - Injection site pain [Not Recovered/Not Resolved]
  - Thrombosis [Unknown]
  - Stress [Unknown]
  - Myalgia [Unknown]
  - Disease progression [Not Recovered/Not Resolved]
  - Labyrinthitis [Unknown]
  - Infection [Unknown]
  - Balance disorder [Unknown]
  - Muscle rigidity [Unknown]
  - Dizziness [Not Recovered/Not Resolved]
  - Gastrointestinal disorder [Unknown]
  - Back pain [Not Recovered/Not Resolved]
  - Therapeutic product effect incomplete [Unknown]
  - Ankylosing spondylitis [Unknown]
  - Movement disorder [Not Recovered/Not Resolved]
  - Crohn^s disease [Unknown]
  - Injection site mass [Unknown]
  - General physical health deterioration [Unknown]
  - Abdominal pain [Unknown]
  - Condition aggravated [Unknown]
  - Dysstasia [Unknown]
  - Pain in extremity [Unknown]
  - Fatigue [Not Recovered/Not Resolved]
  - Mobility decreased [Not Recovered/Not Resolved]
  - Arthralgia [Unknown]
  - Pain [Not Recovered/Not Resolved]

NARRATIVE: CASE EVENT DATE: 2009
